FAERS Safety Report 5821620-3 (Version None)
Quarter: 2008Q3

REPORT INFORMATION
  Report Type: 
  Country: None (occurrence: None)
  Receive Date: 20080722
  Receipt Date: 20080716
  Transmission Date: 20090109
  Serious: Yes (Death)
  Sender: FDA-Public Use
  Company Number: 163-21880-08070861

PATIENT
  Age: 74 Year
  Sex: Female
  Weight: 91.8 kg

DRUGS (7)
  1. REVLIMID [Suspect]
     Indication: MULTIPLE MYELOMA
     Dosage: 25 MG, D 1-28 Q 35 DAYS, ORAL
     Route: 048
     Dates: start: 20041220, end: 20050226
  2. DEXAMETHASONE TAB [Suspect]
     Indication: MULTIPLE MYELOMA
     Dosage: 40 MG, D 1-4, 9-12, 17-20 Q 35DAYS, ORAL
     Route: 048
     Dates: start: 20041220, end: 20050220
  3. RED BLOOD CELLS [Concomitant]
  4. LEXAPRO [Concomitant]
  5. LEVOFLOXACIN [Concomitant]
  6. AZITHROMYCIN [Concomitant]
  7. O2 [Concomitant]

REACTIONS (9)
  - ASTHENIA [None]
  - BODY TEMPERATURE INCREASED [None]
  - DEPRESSION [None]
  - HAEMOGLOBIN DECREASED [None]
  - LETHARGY [None]
  - OXYGEN SATURATION DECREASED [None]
  - PALLOR [None]
  - SUDDEN DEATH [None]
  - UPPER RESPIRATORY TRACT INFECTION [None]
